FAERS Safety Report 21304417 (Version 1)
Quarter: 2022Q3

REPORT INFORMATION
  Report Type: Spontaneous
  Country: US (occurrence: None)
  Receive Date: 20220907
  Receipt Date: 20220907
  Transmission Date: 20221026
  Serious: No
  Sender: FDA-Public Use
  Company Number: US-ARIS GLOBAL-202108-1390

PATIENT
  Age: 94 Year
  Sex: Female

DRUGS (14)
  1. OXERVATE [Suspect]
     Active Substance: CENEGERMIN-BKBJ
     Indication: Neurotrophic keratopathy
     Route: 047
     Dates: start: 20210716, end: 20210811
  2. AMIODARONE HYDROCHLORIDE [Concomitant]
     Active Substance: AMIODARONE HYDROCHLORIDE
  3. FUROSEMIDE [Concomitant]
     Active Substance: FUROSEMIDE
  4. LIPITOR [Concomitant]
     Active Substance: ATORVASTATIN CALCIUM
  5. SYNTHROID [Concomitant]
     Active Substance: LEVOTHYROXINE SODIUM
  6. BYSTOLIC [Concomitant]
     Active Substance: NEBIVOLOL HYDROCHLORIDE
  7. ELIQUIS [Concomitant]
     Active Substance: APIXABAN
  8. TELMISARTAN w/HYDROCHLOROTHIAZID [Concomitant]
  9. FISH OIL [Concomitant]
     Active Substance: FISH OIL
     Route: 048
  10. MURO 128 [Concomitant]
     Active Substance: SODIUM CHLORIDE
  11. MURO 128 [Concomitant]
     Active Substance: SODIUM CHLORIDE
     Dosage: AT NIGHT
  12. TIMOLOL MALEATE [Concomitant]
     Active Substance: TIMOLOL MALEATE
  13. TRAVATAN Z [Concomitant]
     Active Substance: TRAVOPROST
     Dosage: AT NIGHT
     Route: 047
  14. RESTASIS [Concomitant]
     Active Substance: CYCLOSPORINE

REACTIONS (3)
  - Lacrimation increased [Not Recovered/Not Resolved]
  - Eye pain [Recovered/Resolved]
  - Intraocular pressure increased [Not Recovered/Not Resolved]

NARRATIVE: CASE EVENT DATE: 20210810
